FAERS Safety Report 8761879 (Version 2)
Quarter: 2012Q4

REPORT INFORMATION
  Report Type: Report from Study
  Country: JP (occurrence: JP)
  Receive Date: 20120830
  Receipt Date: 20121206
  Transmission Date: 20130627
  Serious: Yes (Hospitalization, Other)
  Sender: FDA-Public Use
  Company Number: JP-VERTEX PHARMACEUTICAL INC.-2012-020348

PATIENT
  Age: 62 Year
  Sex: Male

DRUGS (24)
  1. VX-950 (TELAPREVIR) [Suspect]
     Indication: CHRONIC HEPATITIS C
     Dosage: 2250 mg, qd
     Route: 048
     Dates: start: 20120522, end: 20120709
  2. VX-950 (TELAPREVIR) [Suspect]
     Dosage: 1500 UNK, UNK
     Route: 048
     Dates: start: 20120710, end: 20120803
  3. REBETOL [Suspect]
     Indication: CHRONIC HEPATITIS C
     Dosage: 800 mg, qd
     Route: 048
     Dates: start: 20120522, end: 20120625
  4. REBETOL [Suspect]
     Dosage: 600 mg, UNK
     Route: 048
     Dates: start: 20120626, end: 20120709
  5. REBETOL [Suspect]
     Dosage: 400 UNK, UNK
     Route: 048
     Dates: start: 20120710, end: 20120723
  6. REBETOL [Suspect]
     Dosage: 200 UNK, UNK
     Route: 048
     Dates: start: 20120724, end: 20120730
  7. REBETOL [Suspect]
     Dosage: 200 mg, qd
     Route: 048
     Dates: start: 20120828, end: 20121001
  8. REBETOL [Suspect]
     Dosage: 400 UNK, UNK
     Route: 048
     Dates: start: 20121002, end: 20121015
  9. REBETOL [Suspect]
     Dosage: 600 UNK, UNK
     Route: 048
     Dates: start: 20121016, end: 20121029
  10. REBETOL [Suspect]
     Dosage: 400 UNK, UNK
     Route: 048
     Dates: start: 20121030
  11. PEGINTRON                          /01543001/ [Suspect]
     Indication: CHRONIC HEPATITIS C
     Dosage: 1.5 ?g/kg, qw
     Route: 058
     Dates: start: 20120522, end: 20120625
  12. PEGINTRON                          /01543001/ [Suspect]
     Dosage: 1.2 ?g/kg, qw
     Route: 058
     Dates: start: 20120626, end: 20120723
  13. PEGINTRON                          /01543001/ [Suspect]
     Dosage: 1.0 ?g/kg, qw
     Route: 058
     Dates: start: 20120724, end: 20120806
  14. PEGINTRON                          /01543001/ [Suspect]
     Dosage: 1.2 ?g/kg, qw
     Route: 058
     Dates: start: 20120807, end: 20120813
  15. PEGINTRON                          /01543001/ [Suspect]
     Dosage: 1.5 ?g/kg, qw
     Route: 058
     Dates: start: 20120821, end: 20120917
  16. PEGINTRON                          /01543001/ [Suspect]
     Dosage: 1.2 ?g/kg, qw
     Route: 058
     Dates: start: 20120918, end: 20121029
  17. PEGINTRON                          /01543001/ [Suspect]
     Dosage: 1.5 ?g/kg, qw
     Route: 058
     Dates: start: 20121030
  18. EXFORGE [Concomitant]
     Dosage: 1 DF, qd
     Route: 048
     Dates: end: 20120626
  19. ZYLORIC [Concomitant]
     Dosage: 100 mg, qd
     Route: 048
     Dates: end: 20120523
  20. ZYLORIC [Concomitant]
     Dosage: 300 mg, qd
     Route: 048
     Dates: end: 20120730
  21. ZYLORIC [Concomitant]
     Dosage: 100 mg, qd
     Route: 048
     Dates: start: 20120731
  22. OMEPRAL /00661201/ [Concomitant]
     Dosage: 20 mg, qd
     Route: 048
     Dates: start: 20120522
  23. PREMINENT [Concomitant]
     Dosage: 1 DF, qd
     Route: 048
     Dates: start: 20120627
  24. URINORM [Concomitant]
     Dosage: 50 mg, qd
     Route: 048

REACTIONS (5)
  - Malaise [Not Recovered/Not Resolved]
  - Malaise [Recovered/Resolved]
  - Blood creatinine increased [Not Recovered/Not Resolved]
  - Blood creatinine increased [Not Recovered/Not Resolved]
  - Haemoglobin decreased [Not Recovered/Not Resolved]
